FAERS Safety Report 7796743-2 (Version None)
Quarter: 2011Q4

REPORT INFORMATION
  Report Type: 
  Country: None (occurrence: None)
  Receive Date: 20111003
  Receipt Date: 20110908
  Transmission Date: 20120403
  Serious: Yes (Other)
  Sender: FDA-Public Use
  Company Number: US-JNJFOC-20110905342

PATIENT
  Sex: Female

DRUGS (1)
  1. LISTERINE TOTAL CARE ZERO (ORAL CARE PRODUCTS) UNSPECIFIED [Suspect]
     Indication: PRODUCT USED FOR UNKNOWN INDICATION
     Dosage: USED ONCE. ORAL
     Route: 048

REACTIONS (3)
  - ORAL MUCOSAL EXFOLIATION [None]
  - HYPOAESTHESIA ORAL [None]
  - APPLICATION SITE BURN [None]
